FAERS Safety Report 5368193-X (Version None)
Quarter: 2007Q2

REPORT INFORMATION
  Report Type: 
  Country: None (occurrence: None)
  Receive Date: 20070621
  Receipt Date: 20070621
  Transmission Date: 20071010
  Serious: No
  Sender: FDA-Public Use
  Company Number: None

PATIENT
  Age: 46 Year
  Sex: Female
  Weight: 104 kg

DRUGS (2)
  1. VANCOMYCIN [Suspect]
     Indication: DEVICE RELATED INFECTION
     Dosage: 1 GM EVERY 12 HR IV
     Route: 042
     Dates: start: 20070522, end: 20070619
  2. VANCOMYCIN [Suspect]

REACTIONS (2)
  - HEADACHE [None]
  - TINNITUS [None]
